FAERS Safety Report 6113838-X (Version None)
Quarter: 2009Q1

REPORT INFORMATION
  Report Type: 
  Country: None (occurrence: None)
  Receive Date: 20090312
  Receipt Date: 20090304
  Transmission Date: 20090719
  Serious: Yes (Hospitalization)
  Sender: FDA-Public Use
  Company Number: US-BAXTER-2009BH003683

PATIENT

DRUGS (1)
  1. DURAMORPH PF [Suspect]
     Indication: PAIN MANAGEMENT
     Route: 037

REACTIONS (1)
  - DRUG INEFFECTIVE [None]
